FAERS Safety Report 8529774-5 (Version None)
Quarter: 2012Q3

REPORT INFORMATION
  Report Type: 
  Country: None (occurrence: None)
  Receive Date: 20120723
  Receipt Date: 20120710
  Transmission Date: 20120928
  Serious: Yes (Hospitalization)
  Sender: FDA-Public Use
  Company Number: FR-009507513-1205FRA00021

PATIENT

DRUGS (2)
  1. SINEMET [Suspect]
     Dosage: UNK
     Route: 048
  2. SINEMET [Suspect]
     Indication: PARKINSON'S DISEASE
     Dosage: 8.5 DF, QD
     Route: 048

REACTIONS (5)
  - DYSKINESIA [None]
  - OVERDOSE [None]
  - NAUSEA [None]
  - WEIGHT DECREASED [None]
  - VOMITING [None]
